FAERS Safety Report 23849736 (Version 1)
Quarter: 2024Q2

REPORT INFORMATION
  Report Type: Spontaneous
  Country: US (occurrence: None)
  Receive Date: 20240512
  Receipt Date: 20240512
  Transmission Date: 20240716
  Serious: Yes (Hospitalization, Other)
  Sender: FDA-Public Use
  Company Number: None

PATIENT
  Age: 66 Year
  Sex: Female
  Weight: 44.7 kg

DRUGS (7)
  1. BREYANZI [Suspect]
     Active Substance: LISOCABTAGENE MARALEUCEL
     Indication: Diffuse large B-cell lymphoma
     Dosage: OTHER FREQUENCY : ONCE;?
     Route: 040
     Dates: start: 20231213, end: 20231213
  2. LEVAQUIN [Concomitant]
     Active Substance: LEVOFLOXACIN
  3. FLUCONAZOLE [Concomitant]
     Active Substance: FLUCONAZOLE
  4. ACYCLOVIR [Concomitant]
     Active Substance: ACYCLOVIR
  5. ATOVAQUONE [Concomitant]
     Active Substance: ATOVAQUONE
  6. KEPPRA [Concomitant]
     Active Substance: LEVETIRACETAM
     Dates: start: 20231212
  7. ALLOPURINOL [Concomitant]
     Active Substance: ALLOPURINOL

REACTIONS (5)
  - Cytokine release syndrome [None]
  - Hypotension [None]
  - Immune effector cell-associated neurotoxicity syndrome [None]
  - Aphasia [None]
  - Chills [None]

NARRATIVE: CASE EVENT DATE: 20231220
